FAERS Safety Report 8770395 (Version 1)
Quarter: 2012Q4

REPORT INFORMATION
  Report Type: 
  Country: US (occurrence: US)
  Receive Date: 20120904
  Receipt Date: 20120904
  Transmission Date: 20130627
  Serious: Yes (Hospitalization)
  Sender: FDA-Public Use
  Company Number: US-ELI_LILLY_AND_COMPANY-US201207003923

PATIENT
  Sex: Female
  Weight: 56.69 kg

DRUGS (11)
  1. CYMBALTA [Suspect]
     Indication: BIPOLAR DISORDER
     Dosage: 120 mg, qd
     Route: 048
     Dates: start: 201202
  2. CYMBALTA [Suspect]
     Dosage: 30 mg, qd
  3. NEURONTIN [Concomitant]
     Dosage: 600 mg, tid
  4. ABILIFY [Concomitant]
     Dosage: 10 mg, qd
  5. INTUNIV [Concomitant]
     Dosage: 4 mg, qd
  6. VYVANSE [Concomitant]
     Dosage: 70 mg, qd
  7. FLEXERIL [Concomitant]
     Dosage: UNK, prn
  8. LACTULOSE [Concomitant]
     Dosage: 15 ml, bid
  9. AMITIZA [Concomitant]
     Dosage: 24 mg, tid
  10. MIRALAX [Concomitant]
     Dosage: 1 DF, tid
  11. MULTIVITAMIN [Concomitant]

REACTIONS (3)
  - Impaired gastric emptying [Recovering/Resolving]
  - Constipation [Recovering/Resolving]
  - Off label use [Unknown]
